FAERS Safety Report 21470079 (Version 3)
Quarter: 2023Q1

REPORT INFORMATION
  Report Type: Report from Study
  Country: US (occurrence: US)
  Receive Date: 20221018
  Receipt Date: 20230102
  Transmission Date: 20230417
  Serious: Yes (Hospitalization)
  Sender: FDA-Public Use
  Company Number: US-ABBVIE-4149666

PATIENT
  Age: 57 Year
  Sex: Male

DRUGS (1)
  1. IMBRUVICA [Suspect]
     Active Substance: IBRUTINIB
     Indication: Chronic lymphocytic leukaemia
     Route: 048
     Dates: start: 20190122

REACTIONS (11)
  - Hypertension [Unknown]
  - Acne [Unknown]
  - Tooth extraction [Unknown]
  - Chest pain [Unknown]
  - Fatigue [Unknown]
  - Nausea [Unknown]
  - Rash erythematous [Unknown]
  - Gastric disorder [Unknown]
  - Wound secretion [Unknown]
  - Skin fissures [Unknown]
  - Liver disorder [Unknown]

NARRATIVE: CASE EVENT DATE: 20190101
